FAERS Safety Report 8243295 (Version 2)
Quarter: 2012Q4

REPORT INFORMATION
  Report Type: Spontaneous
  Country: US (occurrence: None)
  Receive Date: 20111103
  Receipt Date: 20120927
  Transmission Date: 20130627
  Serious: Yes (Hospitalization, Other)
  Sender: FDA-Public Use
  Company Number: 2011MA015565

PATIENT
  Sex: Female
  Weight: 64.86 kg

DRUGS (73)
  1. METOCLOPRAMIDE [Suspect]
     Indication: PRODUCT USED FOR UNKNOWN INDICATION
     Route: 048
     Dates: start: 20001017, end: 20001217
  2. ACETAMINOPHEN W/CODEINE [Concomitant]
  3. ACYCLOVIR [Concomitant]
  4. ADVAIR [Concomitant]
  5. ALBUTEROL [Concomitant]
  6. ALPRAZOLAM [Concomitant]
  7. AMARYL [Concomitant]
  8. AMLODIPINE [Concomitant]
  9. ASPIRINE [Concomitant]
  10. BIAXIN XL [Concomitant]
  11. BISACODYL [Concomitant]
  12. BROMETANE DX [Concomitant]
  13. BUMETANIDE [Concomitant]
  14. CARVEDILOL [Concomitant]
  15. CEPHALEXIN [Concomitant]
  16. CIPRO [Concomitant]
  17. CITRUCEL [Concomitant]
  18. COMBIVENT [Concomitant]
  19. CYCLOBENZAPRINE [Concomitant]
  20. DETROL LA [Concomitant]
  21. DIPHENHYDRAMINE [Concomitant]
  22. DOCUSATE SODIUM [Concomitant]
  23. DSS/CASANTHRANOL [Concomitant]
  24. DURAGESIC [Concomitant]
  25. FOSAMAX [Concomitant]
  26. FUROSEMIDE [Concomitant]
  27. GLIMEPIRIDE [Concomitant]
  28. GUAIFENEX PSE [Concomitant]
  29. GUIATUSS AC [Concomitant]
  30. HUMULIN R [Concomitant]
  31. HYDROCODONE W/APAP [Concomitant]
  32. IBUPROFEN [Concomitant]
  33. I-CAPS [Concomitant]
  34. IPRATROPIUM BROMIDE [Concomitant]
  35. ISOSORBIDE DN [Concomitant]
  36. LEVAQUIN [Concomitant]
  37. LORAZEPAM [Concomitant]
  38. LOVENOX [Concomitant]
  39. MEPERIDINE [Concomitant]
  40. METOPROLOL [Concomitant]
  41. MILK OF MAGNESIA [Concomitant]
  42. NEOMYCIN-POLYMIXIN-HC [Concomitant]
  43. NICODERM CQ [Concomitant]
  44. NITROGLYCERIN [Concomitant]
  45. NITROSTAT [Concomitant]
  46. NOVOLIN R [Concomitant]
  47. NYSTATIN SUSPENSION [Concomitant]
  48. NYSTATIN CREAM [Concomitant]
  49. NYSTOP [Concomitant]
  50. OCUFLOX [Concomitant]
  51. OMEPRAZOLE [Concomitant]
  52. ORAMORPH SR [Concomitant]
  53. OYSTER SHELL CALCIUM WITH VITAMIN D [Concomitant]
  54. PHENAZOPYRIDINE [Concomitant]
  55. PROMETHAZINE [Concomitant]
  56. PROPOXYPHENE-N 100 [Concomitant]
  57. PROTONIX [Concomitant]
  58. POTASSIUM CHLORIDE [Concomitant]
  59. PREDNISOLONE AC [Concomitant]
  60. PROCHLORPERAZINE [Concomitant]
  61. REMERON [Concomitant]
  62. ROXICET [Concomitant]
  63. SERTRALINE [Concomitant]
  64. SINGULAIR [Concomitant]
  65. TEMAZEPAM [Concomitant]
  66. THEOLAIR-SR [Concomitant]
  67. TRAMADOL [Concomitant]
  68. TRIAMCINOLONE [Concomitant]
  69. TRIMETHOPRIM [Concomitant]
  70. VASOTEC [Concomitant]
  71. WARFARIN [Concomitant]
  72. ZESTRIL [Concomitant]
  73. ZITHROMAX [Concomitant]

REACTIONS (4)
  - Tardive dyskinesia [None]
  - Emotional disorder [None]
  - Economic problem [None]
  - Incorrect drug administration duration [None]
